FAERS Safety Report 21610459 (Version 1)
Quarter: 2022Q4

REPORT INFORMATION
  Report Type: Spontaneous
  Country: US (occurrence: US)
  Receive Date: 20221117
  Receipt Date: 20221117
  Transmission Date: 20230113
  Serious: Yes (Other)
  Sender: FDA-Public Use
  Company Number: US-LOTUS-2022-LOTUS-049480

PATIENT
  Sex: Male

DRUGS (4)
  1. METHOTREXATE [Suspect]
     Active Substance: METHOTREXATE
     Indication: Central nervous system lymphoma
  2. TEMOZOLOMIDE [Suspect]
     Active Substance: TEMOZOLOMIDE
     Indication: Central nervous system lymphoma
  3. RITUXIMAB [Suspect]
     Active Substance: RITUXIMAB
     Indication: Central nervous system lymphoma
     Dosage: 375 MG/M2 EQUAL TO 720
  4. LEUCOVORIN [Suspect]
     Active Substance: LEUCOVORIN
     Indication: Central nervous system lymphoma
     Dosage: 100 MG/M2 EQUAL TO 200 MG

REACTIONS (3)
  - Nephropathy [Unknown]
  - Acute kidney injury [Unknown]
  - Hepatic function abnormal [Unknown]
